FAERS Safety Report 22843788 (Version 6)
Quarter: 2023Q4

REPORT INFORMATION
  Report Type: Spontaneous
  Country: US (occurrence: US)
  Receive Date: 20230821
  Receipt Date: 20231219
  Transmission Date: 20240110
  Serious: No
  Sender: FDA-Public Use
  Company Number: US-PFIZER INC-202300277814

PATIENT
  Age: 12 Year
  Sex: Male
  Weight: 29.94 kg

DRUGS (2)
  1. GENOTROPIN [Suspect]
     Active Substance: SOMATROPIN
     Indication: Growth hormone deficiency
     Dosage: 1.2 MG
     Route: 058
  2. GENOTROPIN [Suspect]
     Active Substance: SOMATROPIN
     Dosage: 1.2 MG, DAILY (EVERY NIGHT)

REACTIONS (6)
  - Poor quality device used [Unknown]
  - Drug dose omission by device [Unknown]
  - Device use error [Unknown]
  - Device leakage [Unknown]
  - Device breakage [Unknown]
  - Device physical property issue [Unknown]
